FAERS Safety Report 13061885 (Version 6)
Quarter: 2019Q1

REPORT INFORMATION
  Report Type: Spontaneous
  Country: DK (occurrence: DK)
  Receive Date: 20161226
  Receipt Date: 20190211
  Transmission Date: 20190417
  Serious: Yes (Hospitalization, Other)
  Sender: FDA-Public Use
  Company Number: DK-AUROBINDO-AUR-APL-2016-15519

PATIENT

DRUGS (3)
  1. SERTRALINE [Suspect]
     Active Substance: SERTRALINE HYDROCHLORIDE
     Indication: ATTENTION DEFICIT/HYPERACTIVITY DISORDER
     Dosage: 100 MILLIGRAM, ONCE A DAY
     Route: 065
  2. LISDEXAMFETAMINE [Suspect]
     Active Substance: LISDEXAMFETAMINE
     Indication: ATTENTION DEFICIT/HYPERACTIVITY DISORDER
     Dosage: 70 MILLIGRAM, ONCE A DAY
     Route: 065
  3. SERTRALINE [Suspect]
     Active Substance: SERTRALINE HYDROCHLORIDE
     Indication: DEPRESSION

REACTIONS (15)
  - Headache [Recovered/Resolved]
  - Cerebral ischaemia [Recovered/Resolved]
  - Agitation [Unknown]
  - Hemiparesis [Recovered/Resolved]
  - Supraventricular extrasystoles [Unknown]
  - Reversible cerebral vasoconstriction syndrome [Unknown]
  - Lack of spontaneous speech [Unknown]
  - Vasospasm [Unknown]
  - Dysarthria [Unknown]
  - Speech disorder [Recovered/Resolved]
  - Cerebral infarction [Recovered/Resolved]
  - Anxiety [Unknown]
  - Supraventricular tachycardia [Unknown]
  - Drug withdrawal syndrome [Unknown]
  - Tachycardia paroxysmal [Unknown]
